FAERS Safety Report 7502211-5 (Version None)
Quarter: 2011Q2

REPORT INFORMATION
  Report Type: 
  Country: None (occurrence: None)
  Receive Date: 20110525
  Receipt Date: 20110519
  Transmission Date: 20111010
  Serious: Yes (Hospitalization)
  Sender: FDA-Public Use
  Company Number: US-AMGEN-US369327

PATIENT
  Age: 82 Year
  Sex: Male
  Weight: 91.82 kg

DRUGS (14)
  1. LEUPROLIDE ACETATE [Concomitant]
     Dosage: UNK UNK, UNK
     Dates: start: 20070125
  2. ONDANSETRON HYDROCHLORIDE [Concomitant]
  3. LEVAQUIN [Concomitant]
     Indication: BRONCHITIS
     Route: 048
     Dates: start: 20090831, end: 20090904
  4. MULTI-VITAMINS [Concomitant]
  5. OMNIPRED [Concomitant]
     Indication: EYE IRRITATION
     Dosage: UNK
     Route: 047
     Dates: start: 20080915
  6. ACETAMINOPHEN [Concomitant]
  7. SIMVASTATIN [Concomitant]
  8. ALBUTEROL SULFATE [Concomitant]
  9. IBUPROFEN [Concomitant]
  10. HEPARIN [Concomitant]
  11. VITAMIN D [Concomitant]
     Indication: OSTEOPOROSIS
     Route: 048
     Dates: start: 20050128
  12. DENOSUMAB [Suspect]
     Indication: PROSTATE CANCER
     Dosage: 1 ML, Q6MO
     Route: 058
     Dates: start: 20090527
  13. CALCIUM CARBONATE [Concomitant]
  14. TYLENOL (CAPLET) [Concomitant]
     Indication: ARTHRITIS
     Dosage: UNK
     Route: 048
     Dates: start: 20081115

REACTIONS (1)
  - CEREBROVASCULAR ACCIDENT [None]
